FAERS Safety Report 6157189-6 (Version None)
Quarter: 2009Q2

REPORT INFORMATION
  Report Type: 
  Country: None (occurrence: None)
  Receive Date: 20090413
  Receipt Date: 20090330
  Transmission Date: 20091009
  Serious: Yes (Hospitalization)
  Sender: FDA-Public Use
  Company Number: 8044587

PATIENT
  Age: 29 Year
  Sex: Female
  Weight: 61 kg

DRUGS (3)
  1. KEPPRA [Suspect]
     Indication: EPILEPSY
     Dosage: 1500 MG 2/D PO
     Route: 048
     Dates: start: 20070707
  2. LYRICA [Suspect]
     Indication: EPILEPSY
     Dosage: 150 MG 2/D PO
     Route: 048
     Dates: start: 20080427
  3. BISOPROLOL FUMARATE [Concomitant]

REACTIONS (2)
  - BRAIN NEOPLASM [None]
  - EPILEPSY [None]
